FAERS Safety Report 8444631-0 (Version None)
Quarter: 2012Q2

REPORT INFORMATION
  Report Type: 
  Country: None (occurrence: None)
  Receive Date: 20120618
  Receipt Date: 20120613
  Transmission Date: 20120825
  Serious: Yes (Hospitalization)
  Sender: FDA-Public Use
  Company Number: FR-PFIZER INC-2012141869

PATIENT
  Age: 61 Year
  Sex: Male

DRUGS (12)
  1. ASPIRIN [Concomitant]
  2. TRAMADOL HCL [Concomitant]
  3. GENTAMICIN [Concomitant]
     Indication: CITROBACTER SEPSIS
     Dosage: UNK
     Dates: start: 20120510
  4. PIPERACILLIN AND TAZOBACTAM [Suspect]
     Indication: CITROBACTER SEPSIS
     Dosage: 4 G, 4X/DAY
     Route: 042
     Dates: start: 20120509, end: 20120523
  5. ATACAND [Concomitant]
  6. EZETIMIBE [Concomitant]
  7. NOVONORM [Concomitant]
  8. STILNOX [Concomitant]
  9. CLINDAMYCIN HCL [Concomitant]
     Indication: CITROBACTER SEPSIS
     Dosage: UNK
     Dates: start: 20120510
  10. TENORMIN [Concomitant]
  11. OMEPRAZOLE [Concomitant]
  12. NOREPINEPHRINE BITARTRATE [Concomitant]

REACTIONS (5)
  - BONE MARROW FAILURE [None]
  - AGRANULOCYTOSIS [None]
  - SEPTIC SHOCK [None]
  - RENAL IMPAIRMENT [None]
  - JUGULAR VEIN THROMBOSIS [None]
